FAERS Safety Report 5158308-0 (Version None)
Quarter: 2006Q4

REPORT INFORMATION
  Report Type: 
  Country: None (occurrence: None)
  Receive Date: 20061128
  Receipt Date: 20061020
  Transmission Date: 20070319
  Serious: Yes (Hospitalization, Other)
  Sender: FDA-Public Use
  Company Number: FI-RB-004285-06

PATIENT
  Sex: Male

DRUGS (10)
  1. SUBOXONE [Suspect]
     Indication: DRUG DEPENDENCE
     Dosage: DOSAGE UNKNOWN
     Route: 048
     Dates: start: 20060717
  2. SUBOXONE [Suspect]
     Route: 048
     Dates: start: 20060725
  3. SUBOXONE [Suspect]
     Route: 048
     Dates: end: 20060915
  4. SUBOXONE [Suspect]
     Route: 048
     Dates: start: 20060916
  5. SUBOXONE [Suspect]
     Route: 048
     Dates: start: 20060923
  6. SUBOXONE [Suspect]
     Route: 048
     Dates: start: 20061015, end: 20061015
  7. SUBOXONE [Suspect]
     Route: 048
     Dates: start: 20061016, end: 20061016
  8. COMBIVIR [Concomitant]
     Indication: DRUG USE FOR UNKNOWN INDICATION
     Dosage: DOSAGE UNKNOWN
     Route: 048
     Dates: start: 20000101
  9. TELZIR [Concomitant]
     Indication: DRUG USE FOR UNKNOWN INDICATION
     Dosage: DOSAGE UNKNOWN
     Route: 048
     Dates: start: 20060913, end: 20060916
  10. NORVIR [Concomitant]
     Indication: DRUG USE FOR UNKNOWN INDICATION
     Route: 048
     Dates: start: 20000101

REACTIONS (10)
  - BURNING SENSATION [None]
  - CONDITION AGGRAVATED [None]
  - HYPERHIDROSIS [None]
  - HYPERSENSITIVITY [None]
  - LIVER FUNCTION TEST ABNORMAL [None]
  - PRURITUS [None]
  - PSORIASIS [None]
  - RASH GENERALISED [None]
  - SKIN EXFOLIATION [None]
  - SKIN NODULE [None]
